FAERS Safety Report 11651810 (Version 1)
Quarter: 2015Q4

REPORT INFORMATION
  Report Type: Spontaneous
  Country: US (occurrence: US)
  Receive Date: 20151022
  Receipt Date: 20151022
  Transmission Date: 20160304
  Serious: No
  Sender: FDA-Public Use
  Company Number: US-JNJFOC-20151000238

PATIENT
  Age: 35 Year
  Sex: Female
  Weight: 110.68 kg

DRUGS (26)
  1. CLONIDINE. [Concomitant]
     Active Substance: CLONIDINE
     Route: 048
  2. METOLAZONE. [Concomitant]
     Active Substance: METOLAZONE
     Route: 048
  3. AVAPRO [Concomitant]
     Active Substance: IRBESARTAN
     Route: 048
  4. CELLCEPT [Concomitant]
     Active Substance: MYCOPHENOLATE MOFETIL\MYCOPHENOLATE MOFETIL HYDROCHLORIDE
     Route: 048
  5. SINGULAIR [Concomitant]
     Active Substance: MONTELUKAST SODIUM
     Route: 048
  6. ZANTAC [Concomitant]
     Active Substance: RANITIDINE HYDROCHLORIDE
     Route: 048
  7. APREMILAST [Concomitant]
     Active Substance: APREMILAST
     Route: 065
  8. PREVACID [Concomitant]
     Active Substance: LANSOPRAZOLE
     Route: 048
  9. PULMICORT TURBUHALER [Concomitant]
     Active Substance: BUDESONIDE
     Indication: ASTHMA
  10. SIMPONI [Suspect]
     Active Substance: GOLIMUMAB
     Indication: PSORIATIC ARTHROPATHY
     Route: 058
     Dates: start: 2014
  11. TRIAMTERENE. [Concomitant]
     Active Substance: TRIAMTERENE
  12. ASPIRIN. [Concomitant]
     Active Substance: ASPIRIN
     Route: 048
  13. BIOTIN [Concomitant]
     Active Substance: BIOTIN
     Route: 048
  14. CALCIUM+ D. [Concomitant]
     Route: 048
  15. ROBINUL [Concomitant]
     Active Substance: GLYCOPYRROLATE
     Route: 048
  16. INDERAL [Concomitant]
     Active Substance: PROPRANOLOL HYDROCHLORIDE
     Route: 048
  17. SUPER B COMPLEX [Concomitant]
     Active Substance: CYANOCOBALAMIN\DEXPANTHENOL\NIACINAMIDE\PYRIDOXINE HYDROCHLORIDE\RIBOFLAVIN 5^-PHOSPHATE SODIUM\THIAMINE HYDROCHLORIDE\VITAMIN B COMPLEX
     Route: 048
  18. VITAMIN B6 [Concomitant]
     Active Substance: PYRIDOXINE HYDROCHLORIDE
     Route: 048
  19. ACIDOPHILUS [Concomitant]
     Active Substance: LACTOBACILLUS ACIDOPHILUS
     Route: 048
  20. AMITRIPTYLINE [Concomitant]
     Active Substance: AMITRIPTYLINE
     Route: 048
  21. PLAVIX [Concomitant]
     Active Substance: CLOPIDOGREL BISULFATE
     Route: 048
  22. FOLIC ACID. [Concomitant]
     Active Substance: FOLIC ACID
     Route: 048
  23. LASIX [Concomitant]
     Active Substance: FUROSEMIDE
     Dosage: STRENGTH: 20 MG
     Route: 048
  24. DROSPIRENONE [Concomitant]
     Active Substance: DROSPIRENONE
     Route: 048
  25. VITAMIN B12 [Concomitant]
     Active Substance: CYANOCOBALAMIN
     Route: 048
  26. PREDNISONE. [Concomitant]
     Active Substance: PREDNISONE
     Route: 065

REACTIONS (3)
  - Incorrect product storage [Unknown]
  - Device malfunction [Not Recovered/Not Resolved]
  - Drug dose omission [Not Recovered/Not Resolved]

NARRATIVE: CASE EVENT DATE: 20150930
